FAERS Safety Report 7586022-0 (Version None)
Quarter: 2011Q2

REPORT INFORMATION
  Report Type: 
  Country: None (occurrence: None)
  Receive Date: 20110624
  Receipt Date: 20110614
  Transmission Date: 20111010
  Serious: Yes (Hospitalization, Other)
  Sender: FDA-Public Use
  Company Number: 2011SP000364

PATIENT
  Age: 34 Year
  Sex: Female
  Weight: 115.2136 kg

DRUGS (8)
  1. WOMEN'S MULTIVITAMIN (MULTIVITAMIN) [Concomitant]
  2. VIVELLE-DOT [Concomitant]
  3. CYTOMEL [Concomitant]
  4. PRILOSEC [Concomitant]
  5. SYNTHROID [Concomitant]
  6. CELEXA [Concomitant]
  7. WELLBUTRIN [Concomitant]
  8. NUVARING [Suspect]
     Indication: HORMONE REPLACEMENT THERAPY
     Dosage: QM
     Dates: start: 20081217, end: 20090111

REACTIONS (39)
  - PEPTIC ULCER [None]
  - HYPERCOAGULATION [None]
  - TOOTH DISORDER [None]
  - PAIN [None]
  - EMOTIONAL DISORDER [None]
  - PAIN IN EXTREMITY [None]
  - HYPERTRIGLYCERIDAEMIA [None]
  - NAUSEA [None]
  - FATIGUE [None]
  - FACTOR II MUTATION [None]
  - ABSCESS ORAL [None]
  - ASTHMA [None]
  - DEPRESSION [None]
  - GENERAL PHYSICAL CONDITION ABNORMAL [None]
  - DEEP VEIN THROMBOSIS [None]
  - MULTIPLE INJURIES [None]
  - CHEST PAIN [None]
  - LIBIDO DECREASED [None]
  - DYSPEPSIA [None]
  - PULMONARY INFARCTION [None]
  - HEPATIC STEATOSIS [None]
  - PULMONARY EMBOLISM [None]
  - BLOOD DISORDER [None]
  - MENTAL DISORDER [None]
  - CONDITION AGGRAVATED [None]
  - HYPOAESTHESIA [None]
  - MUSCLE SPASMS [None]
  - THROMBOSIS [None]
  - BACK PAIN [None]
  - HIATUS HERNIA [None]
  - RESPIRATORY DISORDER [None]
  - ARTHRALGIA [None]
  - LIMB DISCOMFORT [None]
  - H1N1 INFLUENZA [None]
  - MIGRAINE [None]
  - BLOOD PRESSURE ABNORMAL [None]
  - DIZZINESS [None]
  - ASTHENIA [None]
  - SWELLING [None]
